FAERS Safety Report 7345395-4 (Version None)
Quarter: 2011Q1

REPORT INFORMATION
  Report Type: 
  Country: None (occurrence: None)
  Receive Date: 20110310
  Receipt Date: 20110225
  Transmission Date: 20110831
  Serious: Yes (Other)
  Sender: FDA-Public Use
  Company Number: DE-AMGEN-DEUSP2011010832

PATIENT
  Age: 77 Year
  Sex: Male

DRUGS (1)
  1. NPLATE [Suspect]
     Indication: IDIOPATHIC THROMBOCYTOPENIC PURPURA
     Dosage: UNK UNK, QWK

REACTIONS (5)
  - NASOPHARYNGITIS [None]
  - ARTHRALGIA [None]
  - THERAPEUTIC RESPONSE DECREASED [None]
  - PRURITUS [None]
  - CONSTIPATION [None]
